FAERS Safety Report 8560652-1 (Version None)
Quarter: 2012Q3

REPORT INFORMATION
  Report Type: 
  Country: None (occurrence: None)
  Receive Date: 20120802
  Receipt Date: 20120730
  Transmission Date: 20120928
  Serious: Yes (Other)
  Sender: FDA-Public Use
  Company Number: US-PFIZER INC-2012153493

PATIENT
  Sex: Male

DRUGS (5)
  1. BYSTOLIC [Concomitant]
     Indication: HYPERTENSION
     Dosage: 5 MG
  2. SYNTHROID [Concomitant]
     Indication: HYPOTHYROIDISM
     Dosage: DAILY
  3. KLONOPIN [Concomitant]
     Indication: RESTLESS LEGS SYNDROME
     Dosage: 0.5
  4. ASPIRIN [Concomitant]
     Dosage: DAILY
  5. CELEBREX [Suspect]
     Indication: RADIUS FRACTURE
     Dosage: 200 MG, DAILY
     Route: 048

REACTIONS (2)
  - IMPAIRED HEALING [None]
  - FRACTURE NONUNION [None]
